FAERS Safety Report 5142886-1 (Version None)
Quarter: 2006Q4

REPORT INFORMATION
  Report Type: 
  Country: None (occurrence: None)
  Receive Date: 20061030
  Receipt Date: 20061016
  Transmission Date: 20070319
  Serious: Yes (Other)
  Sender: FDA-Public Use
  Company Number: 033-19

PATIENT
  Age: 73 Year
  Sex: Female

DRUGS (6)
  1. TEVETEN HCT [Suspect]
     Indication: HYPERTENSION
     Dosage: 1 TABLET (S) PO
     Route: 048
     Dates: start: 20060719, end: 20060801
  2. ABILIFY [Suspect]
     Dosage: 10 MG DAILY PO
     Route: 048
  3. AKINETON [Suspect]
     Dosage: 2 MG DAILY PO
     Route: 048
  4. SERETIDE DISKUS [Concomitant]
  5. MAGNESIOCARD [Concomitant]
  6. MARCUMAR [Concomitant]

REACTIONS (2)
  - CONDITION AGGRAVATED [None]
  - PSYCHOTIC DISORDER [None]
